FAERS Safety Report 24084374 (Version 1)
Quarter: 2024Q3

REPORT INFORMATION
  Report Type: Spontaneous
  Country: CH (occurrence: CH)
  Receive Date: 20240712
  Receipt Date: 20240712
  Transmission Date: 20241016
  Serious: Yes (Other)
  Sender: ENDO
  Company Number: CH-ENDO USA, INC.-2024-002852

PATIENT
  Age: 77 Year
  Sex: Female

DRUGS (2)
  1. VENLAFAXINE HYDROCHLORIDE [Suspect]
     Active Substance: VENLAFAXINE HYDROCHLORIDE
     Indication: Depression
     Dosage: 375 MILLIGRAM, DAILY (FOR YEARS)
     Route: 065
  2. VENLAFAXINE HYDROCHLORIDE [Suspect]
     Active Substance: VENLAFAXINE HYDROCHLORIDE
     Dosage: 150 MILLIGRAM, UNKNOWN
     Route: 065

REACTIONS (2)
  - Cardiac failure chronic [Recovered/Resolved]
  - Incorrect dose administered [Recovered/Resolved]
